FAERS Safety Report 23136783 (Version 1)
Quarter: 2023Q4

REPORT INFORMATION
  Report Type: Spontaneous
  Country: GB (occurrence: GB)
  Receive Date: 20231102
  Receipt Date: 20231102
  Transmission Date: 20240110
  Serious: Yes (Other)
  Sender: FDA-Public Use
  Company Number: None

PATIENT
  Age: 40 Year
  Sex: Female
  Weight: 77 kg

DRUGS (1)
  1. LEVOTHYROXINE [Suspect]
     Active Substance: LEVOTHYROXINE
     Indication: Hypothyroidism
     Dosage: 75 MICROGRAM DAILY;
     Route: 065

REACTIONS (3)
  - Muscle spasms [Recovering/Resolving]
  - Headache [Recovered/Resolved]
  - Muscle twitching [Unknown]
